FAERS Safety Report 9568893 (Version 1)
Quarter: 2013Q3

REPORT INFORMATION
  Report Type: Spontaneous
  Country: US (occurrence: US)
  Receive Date: 20130930
  Receipt Date: 20130930
  Transmission Date: 20140515
  Serious: No
  Sender: FDA-Public Use
  Company Number: US-AMGEN-USASP2013060205

PATIENT
  Age: 38 Year
  Sex: Female

DRUGS (1)
  1. ENBREL [Suspect]
     Indication: RHEUMATOID ARTHRITIS
     Dosage: 50 MG, Q2WK
     Route: 065
     Dates: start: 200907, end: 2010

REACTIONS (6)
  - Red blood cell sedimentation rate increased [Unknown]
  - Erythema [Unknown]
  - Skin swelling [Unknown]
  - Contusion [Unknown]
  - Pain [Unknown]
  - Skin mass [Unknown]
